FAERS Safety Report 9882403 (Version 3)
Quarter: 2014Q2

REPORT INFORMATION
  Report Type: Spontaneous
  Country: US (occurrence: US)
  Receive Date: 20140207
  Receipt Date: 20140516
  Transmission Date: 20141212
  Serious: Yes (Death, Hospitalization)
  Sender: FDA-Public Use
  Company Number: US-B.I. PHARMACEUTICALS,INC./RIDGEFIELD-2014-BI-05343BP

PATIENT
  Age: 82 Year
  Sex: Female
  Weight: 62.4 kg

DRUGS (11)
  1. PRADAXA [Suspect]
     Indication: ATRIAL FIBRILLATION
     Dosage: 300 MG
     Route: 048
     Dates: start: 20110711, end: 20120530
  2. SYNTHROID [Concomitant]
     Dosage: 50 MG
     Route: 065
  3. VYTORIN [Concomitant]
     Route: 065
  4. BYSTOLIC [Concomitant]
     Dosage: 5 MG
     Route: 065
  5. TROSPIM CHLORIDE [Concomitant]
     Dosage: 20 MG
     Route: 065
  6. DIGOXIN [Concomitant]
     Dosage: 0.25 MG
     Route: 065
  7. OMEPRAZOLE [Concomitant]
     Route: 065
  8. EVISTA [Concomitant]
     Dosage: 60 MG
     Route: 065
  9. LISINOPRIL [Concomitant]
     Dosage: 40 MG
     Route: 065
  10. CHLORTHALIDONE [Concomitant]
     Dosage: 12.5 MG
     Route: 065
  11. VOLTAREN [Concomitant]
     Route: 065

REACTIONS (10)
  - Colitis ischaemic [Fatal]
  - Transfusion-related acute lung injury [Fatal]
  - Vocal cord paralysis [Fatal]
  - Gastrointestinal haemorrhage [Recovered/Resolved]
  - Syncope [Unknown]
  - Coagulopathy [Unknown]
  - Haemorrhagic anaemia [Unknown]
  - Acute myocardial infarction [Unknown]
  - Tracheal haemorrhage [Unknown]
  - Gastrointestinal disorder [Unknown]
